FAERS Safety Report 20122649 (Version 2)
Quarter: 2025Q3

REPORT INFORMATION
  Report Type: Spontaneous
  Country: US (occurrence: US)
  Receive Date: 20211128
  Receipt Date: 20250711
  Transmission Date: 20251021
  Serious: Yes (Death, Other)
  Sender: PURDUE
  Company Number: US-PURDUE PHARMA-USA-2020-0188345

PATIENT
  Age: 80 Year
  Sex: Female

DRUGS (3)
  1. MORPHINE SULFATE [Suspect]
     Active Substance: MORPHINE SULFATE
     Indication: Product used for unknown indication
     Route: 048
  2. HYDROCODONE BITARTRATE AND ACETAMINOPHEN [Suspect]
     Active Substance: ACETAMINOPHEN\HYDROCODONE BITARTRATE
     Indication: Product used for unknown indication
     Route: 048
  3. NORCO [Suspect]
     Active Substance: ACETAMINOPHEN\HYDROCODONE BITARTRATE
     Indication: Product used for unknown indication
     Route: 065

REACTIONS (11)
  - Acute respiratory failure [Fatal]
  - Pulmonary oedema [Fatal]
  - Pulmonary hypertension [Fatal]
  - Pulmonary embolism [Fatal]
  - Atrial fibrillation [Fatal]
  - Hypertension [Fatal]
  - Dyspnoea [Unknown]
  - Constipation [Unknown]
  - Libido decreased [Unknown]
  - Gait disturbance [Unknown]
  - Bedridden [Unknown]

NARRATIVE: CASE EVENT DATE: 20210706
